FAERS Safety Report 9670402 (Version 1)
Quarter: 2013Q4

REPORT INFORMATION
  Report Type: Spontaneous
  Country: FR (occurrence: FR)
  Receive Date: 20131105
  Receipt Date: 20131105
  Transmission Date: 20140711
  Serious: Yes (Hospitalization, Other)
  Sender: FDA-Public Use
  Company Number: FR-PFIZER INC-2013309586

PATIENT
  Age: 65 Year
  Sex: Female

DRUGS (7)
  1. SALAZOPYRINE [Suspect]
     Indication: RHEUMATIC DISORDER
     Dosage: 500 MG, 2X/DAY
     Route: 048
     Dates: start: 201202, end: 20130523
  2. KLIPAL [Concomitant]
  3. COAPROVEL [Concomitant]
  4. LEVOTHYROX [Concomitant]
  5. URBANYL [Concomitant]
  6. AVLOCARDYL [Concomitant]
  7. LYRICA [Concomitant]

REACTIONS (3)
  - Bone marrow failure [Not Recovered/Not Resolved]
  - Pancytopenia [Unknown]
  - Sepsis [Unknown]
